FAERS Safety Report 7770460-7 (Version None)
Quarter: 2011Q3

REPORT INFORMATION
  Report Type: 
  Country: None (occurrence: None)
  Receive Date: 20110922
  Receipt Date: 20100803
  Transmission Date: 20111222
  Serious: No
  Sender: FDA-Public Use
  Company Number: US-ASTRAZENECA-2007UW11683

PATIENT
  Age: 14756 Day
  Sex: Female
  Weight: 99.8 kg

DRUGS (13)
  1. SEROQUEL [Suspect]
     Indication: DEPRESSION
     Route: 048
     Dates: start: 20000101, end: 20070201
  2. RISPERDAL [Concomitant]
     Indication: DEPRESSION
     Dates: start: 20070801, end: 20070901
  3. SEROQUEL [Suspect]
     Route: 048
     Dates: start: 20041213
  4. PROPOXYPHENE HYDROCHLORIDE [Concomitant]
     Dates: start: 20051026
  5. SEROQUEL [Suspect]
     Route: 048
     Dates: start: 20060401, end: 20071001
  6. RISPERDAL [Concomitant]
     Indication: BIPOLAR DISORDER
     Dates: start: 20070801, end: 20070901
  7. ZYPREXA [Concomitant]
     Indication: DEPRESSION
     Dates: start: 20060801, end: 20070301
  8. SEROQUEL [Suspect]
     Route: 048
     Dates: start: 20060401, end: 20071001
  9. CITALOPRAM HYDROCHLORIDE [Concomitant]
     Dates: start: 20070924
  10. MOTRIN [Concomitant]
     Dates: start: 20070924
  11. SEROQUEL [Suspect]
     Indication: BIPOLAR DISORDER
     Route: 048
     Dates: start: 20000101, end: 20070201
  12. SEROQUEL [Suspect]
     Route: 048
     Dates: start: 20041213
  13. ZYPREXA [Concomitant]
     Indication: BIPOLAR DISORDER
     Dates: start: 20060801, end: 20070301

REACTIONS (7)
  - HYPERLIPIDAEMIA [None]
  - BLOOD CHOLESTEROL INCREASED [None]
  - DIABETES MELLITUS [None]
  - TYPE 2 DIABETES MELLITUS [None]
  - CARDIAC DISORDER [None]
  - MALAISE [None]
  - DIABETIC COMPLICATION [None]
